FAERS Safety Report 9688339 (Version 1)
Quarter: 2013Q4

REPORT INFORMATION
  Report Type: Spontaneous
  Country: US (occurrence: None)
  Receive Date: 20131113
  Receipt Date: 20131113
  Transmission Date: 20140711
  Serious: No
  Sender: FDA-Public Use
  Company Number: None

PATIENT
  Sex: Male

DRUGS (1)
  1. LIDOCAINE [Suspect]
     Indication: PAIN
     Dosage: WHEN NEEDEWD ON SKIN
     Dates: start: 20131016

REACTIONS (1)
  - Product adhesion issue [None]
